FAERS Safety Report 6274964-8 (Version None)
Quarter: 2009Q3

REPORT INFORMATION
  Report Type: 
  Country: None (occurrence: None)
  Receive Date: 20090721
  Receipt Date: 20090717
  Transmission Date: 20100115
  Serious: Yes (Hospitalization, Other)
  Sender: FDA-Public Use
  Company Number: TH-ALLERGAN-0909015US

PATIENT
  Age: 28 Year
  Sex: Female
  Weight: 48 kg

DRUGS (3)
  1. BOTOX [Suspect]
     Indication: MUSCLE DISORDER
     Dosage: 40 UNITS, SINGLE
     Route: 030
     Dates: start: 20090608, end: 20090608
  2. BOTOX [Suspect]
     Dosage: 50 UNITS, SINGLE
     Route: 030
  3. CINATOXIN [Concomitant]
     Indication: MUSCLE DISORDER
     Dosage: 200 UNITS, SINGLE
     Dates: start: 20090603, end: 20090603

REACTIONS (3)
  - DYSPHAGIA [None]
  - EPIGLOTTITIS [None]
  - MUSCULAR WEAKNESS [None]
